FAERS Safety Report 19746167 (Version 1)
Quarter: 2021Q3

REPORT INFORMATION
  Report Type: Report from Study
  Country: FR (occurrence: FR)
  Receive Date: 20210825
  Receipt Date: 20210825
  Transmission Date: 20211014
  Serious: Yes (Hospitalization, Other)
  Sender: FDA-Public Use
  Company Number: FR-SHIRE-FR201724029

PATIENT
  Sex: Female
  Weight: 44 kg

DRUGS (27)
  1. TEDUGLUTIDE [Suspect]
     Active Substance: TEDUGLUTIDE
     Dosage: 2.4 MG, 1X/DAY:QD
     Route: 042
     Dates: start: 20160817, end: 20160906
  2. TEDUGLUTIDE [Suspect]
     Active Substance: TEDUGLUTIDE
     Dosage: UNK
     Route: 065
     Dates: start: 20170918
  3. TEDUGLUTIDE [Suspect]
     Active Substance: TEDUGLUTIDE
     Indication: SHORT-BOWEL SYNDROME
     Dosage: 2.27 MG, 1X/DAY:QD
     Route: 042
     Dates: start: 20170321, end: 20170512
  4. TEDUGLUTIDE [Suspect]
     Active Substance: TEDUGLUTIDE
     Dosage: UNK
     Route: 065
     Dates: start: 20170918
  5. TEDUGLUTIDE [Suspect]
     Active Substance: TEDUGLUTIDE
     Indication: SHORT-BOWEL SYNDROME
     Dosage: 2.27 MG, 1X/DAY:QD
     Route: 042
     Dates: start: 20170321, end: 20170512
  6. TEDUGLUTIDE [Suspect]
     Active Substance: TEDUGLUTIDE
     Dosage: 2.3 MG, 1X/DAY:QD
     Route: 042
     Dates: start: 20161110, end: 20170321
  7. TEDUGLUTIDE [Suspect]
     Active Substance: TEDUGLUTIDE
     Dosage: 2.6 MG, 1X/DAY:QD
     Route: 042
     Dates: start: 20160617, end: 20160816
  8. TEDUGLUTIDE [Suspect]
     Active Substance: TEDUGLUTIDE
     Dosage: UNK
     Route: 065
     Dates: start: 20170918
  9. LOVENOX [Concomitant]
     Active Substance: ENOXAPARIN SODIUM
     Indication: PROPHYLAXIS
  10. TEDUGLUTIDE [Suspect]
     Active Substance: TEDUGLUTIDE
     Indication: SHORT-BOWEL SYNDROME
     Dosage: 2.27 MG, 1X/DAY:QD
     Route: 042
     Dates: start: 20170321, end: 20170512
  11. TEDUGLUTIDE [Suspect]
     Active Substance: TEDUGLUTIDE
     Dosage: 2.3 MG, 1X/DAY:QD
     Route: 042
     Dates: start: 20161110, end: 20170321
  12. TEDUGLUTIDE [Suspect]
     Active Substance: TEDUGLUTIDE
     Dosage: 2.2 MG, 1X/DAY:QD
     Route: 042
     Dates: start: 20160907, end: 20161109
  13. TEDUGLUTIDE [Suspect]
     Active Substance: TEDUGLUTIDE
     Dosage: 2.4 MG, 1X/DAY:QD
     Route: 042
     Dates: start: 20160817, end: 20160906
  14. TEDUGLUTIDE [Suspect]
     Active Substance: TEDUGLUTIDE
     Dosage: 2.4 MG, 1X/DAY:QD
     Route: 042
     Dates: start: 20160817, end: 20160906
  15. TEDUGLUTIDE [Suspect]
     Active Substance: TEDUGLUTIDE
     Dosage: 2.2 MG, 1X/DAY:QD
     Route: 042
     Dates: start: 20160907, end: 20161109
  16. TEDUGLUTIDE [Suspect]
     Active Substance: TEDUGLUTIDE
     Dosage: 2.6 MG, 1X/DAY:QD
     Route: 042
     Dates: start: 20160617, end: 20160816
  17. TEDUGLUTIDE [Suspect]
     Active Substance: TEDUGLUTIDE
     Dosage: 2.6 MG, 1X/DAY:QD
     Route: 042
     Dates: start: 20160617, end: 20160816
  18. TEDUGLUTIDE [Suspect]
     Active Substance: TEDUGLUTIDE
     Indication: SHORT-BOWEL SYNDROME
     Dosage: 2.27 MG, 1X/DAY:QD
     Route: 042
     Dates: start: 20170321, end: 20170512
  19. TEDUGLUTIDE [Suspect]
     Active Substance: TEDUGLUTIDE
     Dosage: 2.3 MG, 1X/DAY:QD
     Route: 042
     Dates: start: 20161110, end: 20170321
  20. TEDUGLUTIDE [Suspect]
     Active Substance: TEDUGLUTIDE
     Dosage: 2.2 MG, 1X/DAY:QD
     Route: 042
     Dates: start: 20160907, end: 20161109
  21. TEDUGLUTIDE [Suspect]
     Active Substance: TEDUGLUTIDE
     Dosage: 2.4 MG, 1X/DAY:QD
     Route: 042
     Dates: start: 20160817, end: 20160906
  22. TEDUGLUTIDE [Suspect]
     Active Substance: TEDUGLUTIDE
     Dosage: 2.6 MG, 1X/DAY:QD
     Route: 042
     Dates: start: 20160617, end: 20160816
  23. ACUPAN [Concomitant]
     Active Substance: NEFOPAM HYDROCHLORIDE
     Indication: PAIN
  24. TEDUGLUTIDE [Suspect]
     Active Substance: TEDUGLUTIDE
     Dosage: 2.3 MG, 1X/DAY:QD
     Route: 042
     Dates: start: 20161110, end: 20170321
  25. TEDUGLUTIDE [Suspect]
     Active Substance: TEDUGLUTIDE
     Dosage: 2.2 MG, 1X/DAY:QD
     Route: 042
     Dates: start: 20160907, end: 20161109
  26. TEDUGLUTIDE [Suspect]
     Active Substance: TEDUGLUTIDE
     Dosage: UNK
     Route: 065
     Dates: start: 20170918
  27. SEROPLEX [Concomitant]
     Active Substance: ESCITALOPRAM OXALATE
     Indication: DEPRESSION

REACTIONS (2)
  - Condition aggravated [Recovered/Resolved]
  - Intestinal obstruction [Recovered/Resolved]

NARRATIVE: CASE EVENT DATE: 20170924
